FAERS Safety Report 20883781 (Version 2)
Quarter: 2022Q3

REPORT INFORMATION
  Report Type: Report from Study
  Country: US (occurrence: US)
  Receive Date: 20220527
  Receipt Date: 20220706
  Transmission Date: 20221027
  Serious: Yes (Other)
  Sender: FDA-Public Use
  Company Number: US-BAYER-2022A049848

PATIENT
  Age: 72 Year
  Sex: Female
  Weight: 61.2 kg

DRUGS (4)
  1. RADIUM RA-223 DICHLORIDE [Suspect]
     Active Substance: RADIUM RA-223 DICHLORIDE
     Indication: Invasive breast carcinoma
     Dosage: 92 N/A (TOTAL DOSE ADMINISTERED THIS COURSE)
     Dates: start: 20211019, end: 20211221
  2. RADIUM RA-223 DICHLORIDE [Suspect]
     Active Substance: RADIUM RA-223 DICHLORIDE
     Indication: Metastases to bone
     Dosage: 90.5 MCCI
     Dates: end: 20220222
  3. TAXOL [Suspect]
     Active Substance: PACLITAXEL
     Indication: Invasive breast carcinoma
     Dosage: 133.6 MG ( (TOTAL DOSE ADMINISTERED THIS COURSE)
     Dates: start: 20211019, end: 20211228
  4. TAXOL [Suspect]
     Active Substance: PACLITAXEL
     Indication: Metastases to bone
     Dosage: 100.2 MG
     Dates: start: 20220308, end: 20220308

REACTIONS (5)
  - Lymphocyte count decreased [Recovering/Resolving]
  - White blood cell count decreased [None]
  - Neutrophil count decreased [None]
  - Fatigue [Not Recovered/Not Resolved]
  - White blood cell count decreased [Recovering/Resolving]

NARRATIVE: CASE EVENT DATE: 20220104
